FAERS Safety Report 19677073 (Version 2)
Quarter: 2021Q4

REPORT INFORMATION
  Report Type: Spontaneous
  Country: IN (occurrence: IN)
  Receive Date: 20210810
  Receipt Date: 20211022
  Transmission Date: 20220304
  Serious: Yes (Life-Threatening, Hospitalization, Other)
  Sender: FDA-Public Use
  Company Number: IN-LUPIN PHARMACEUTICALS INC.-2021-14022

PATIENT
  Age: 45 Year
  Sex: Male
  Weight: 80 kg

DRUGS (4)
  1. CEFTRIAXONE [Suspect]
     Active Substance: CEFTRIAXONE
     Indication: Antibiotic therapy
     Dosage: 1 GRAM,INJECTION
     Route: 065
  2. MIDAZOLAM [Concomitant]
     Active Substance: MIDAZOLAM
     Indication: Anaesthetic premedication
     Dosage: 2 MILLIGRAM
     Route: 042
  3. CLONIDINE [Concomitant]
     Active Substance: CLONIDINE
     Indication: Local anaesthesia
     Dosage: UNK, SUPRACLAVICULAR BRACHIAL PLEXUS BLOCK
     Route: 065
  4. BUPIVACAINE [Concomitant]
     Active Substance: BUPIVACAINE
     Indication: Local anaesthesia
     Dosage: UNK, SUPRACLAVICULAR BRACHIAL PLEXUS BLOCK
     Route: 065

REACTIONS (1)
  - Anaphylactic reaction [Recovered/Resolved]
